FAERS Safety Report 13651012 (Version 28)
Quarter: 2021Q3

REPORT INFORMATION
  Report Type: Spontaneous
  Country: US (occurrence: US)
  Receive Date: 20170614
  Receipt Date: 20210909
  Transmission Date: 20211014
  Serious: Yes (Hospitalization, Other)
  Sender: FDA-Public Use
  Company Number: US-INCYTE CORPORATION-2017IN004526

PATIENT

DRUGS (39)
  1. JAKAFI [Suspect]
     Active Substance: RUXOLITINIB
     Dosage: 15 MG, BID
     Route: 048
  2. WARFARIN [Suspect]
     Active Substance: WARFARIN
     Indication: PRODUCT USED FOR UNKNOWN INDICATION
     Dosage: UNK
     Route: 065
  3. PEPCID [Suspect]
     Active Substance: FAMOTIDINE
     Indication: PRODUCT USED FOR UNKNOWN INDICATION
     Dosage: PRN
     Route: 065
  4. VITAMIN D [VITAMIN D NOS] [Concomitant]
     Active Substance: VITAMIN D NOS
     Indication: PRODUCT USED FOR UNKNOWN INDICATION
     Dosage: ONCE MONTHLY
     Route: 065
  5. JAKAFI [Suspect]
     Active Substance: RUXOLITINIB
     Indication: MYELOFIBROSIS
     Dosage: 15 MILLIGRAM, BID
     Route: 048
     Dates: start: 20170414
  6. JAKAFI [Suspect]
     Active Substance: RUXOLITINIB
     Indication: POLYCYTHAEMIA VERA
     Dosage: 15 MG, BID
     Route: 065
  7. JAKAFI [Suspect]
     Active Substance: RUXOLITINIB
     Dosage: 15 MILLIGRAM, BID
     Route: 048
     Dates: start: 20170310
  8. JAKAFI [Suspect]
     Active Substance: RUXOLITINIB
     Dosage: 15 MILLIGRAM, BID
     Route: 048
     Dates: start: 20170414
  9. LOVENOX [Suspect]
     Active Substance: ENOXAPARIN SODIUM
     Indication: PRODUCT USED FOR UNKNOWN INDICATION
     Route: 065
  10. PROTONIX                           /00661201/ [Concomitant]
     Active Substance: OMEPRAZOLE
     Indication: PRODUCT USED FOR UNKNOWN INDICATION
     Dosage: UNK
     Route: 065
  11. JAKAFI [Suspect]
     Active Substance: RUXOLITINIB
     Dosage: 15 MILLIGRAM, BID
     Route: 048
     Dates: start: 20170414
  12. ECOTRIN [Concomitant]
     Active Substance: ASPIRIN
     Indication: PRODUCT USED FOR UNKNOWN INDICATION
     Dosage: UNK
     Route: 065
  13. METOPROLOL. [Concomitant]
     Active Substance: METOPROLOL
     Indication: PRODUCT USED FOR UNKNOWN INDICATION
     Route: 065
  14. FUROSEMIDE. [Concomitant]
     Active Substance: FUROSEMIDE
     Indication: PRODUCT USED FOR UNKNOWN INDICATION
     Route: 065
  15. FLONASE [Concomitant]
     Active Substance: FLUTICASONE PROPIONATE
     Indication: PRODUCT USED FOR UNKNOWN INDICATION
     Dosage: UNK
     Route: 045
  16. PANTOPRAZOLE [Concomitant]
     Active Substance: PANTOPRAZOLE
     Indication: PRODUCT USED FOR UNKNOWN INDICATION
     Dosage: UNK
     Route: 065
  17. LASIX [Concomitant]
     Active Substance: FUROSEMIDE
     Indication: PRODUCT USED FOR UNKNOWN INDICATION
     Route: 065
  18. OLMESARTAN [Concomitant]
     Active Substance: OLMESARTAN
     Indication: PRODUCT USED FOR UNKNOWN INDICATION
     Route: 065
  19. DILAUDID [Concomitant]
     Active Substance: HYDROMORPHONE HYDROCHLORIDE
     Indication: PRODUCT USED FOR UNKNOWN INDICATION
     Route: 065
  20. COVID?19 VACCINE [Concomitant]
     Indication: PRODUCT USED FOR UNKNOWN INDICATION
     Dosage: UNK
     Route: 065
     Dates: start: 20201230
  21. JAKAFI [Suspect]
     Active Substance: RUXOLITINIB
     Dosage: 15 MG, BID
     Route: 048
     Dates: start: 20170414
  22. ASPIRIN                            /00002701/ [Concomitant]
     Active Substance: ASPIRIN
     Indication: PRODUCT USED FOR UNKNOWN INDICATION
     Dosage: UNK
     Route: 065
  23. ASTELIN [Concomitant]
     Active Substance: AZELASTINE HYDROCHLORIDE
     Indication: PRODUCT USED FOR UNKNOWN INDICATION
     Dosage: UNK UNK, PRN
     Route: 045
  24. GABAPENTIN. [Concomitant]
     Active Substance: GABAPENTIN
     Indication: PRODUCT USED FOR UNKNOWN INDICATION
     Route: 065
  25. ARIXTRA [Concomitant]
     Active Substance: FONDAPARINUX SODIUM
     Indication: PRODUCT USED FOR UNKNOWN INDICATION
     Route: 065
  26. JAKAFI [Suspect]
     Active Substance: RUXOLITINIB
     Dosage: 15 MG, BID
     Route: 048
  27. JAKAFI [Suspect]
     Active Substance: RUXOLITINIB
     Dosage: 15 MILLIGRAM, BID
     Route: 048
     Dates: start: 2018
  28. JAKAFI [Suspect]
     Active Substance: RUXOLITINIB
     Dosage: 15 MILLIGRAM, BID
     Route: 048
  29. JAKAFI [Suspect]
     Active Substance: RUXOLITINIB
     Dosage: 15 MG, BID
     Route: 048
     Dates: start: 20200310
  30. XANAX [Concomitant]
     Active Substance: ALPRAZOLAM
     Indication: PRODUCT USED FOR UNKNOWN INDICATION
     Dosage: UNK
     Route: 065
  31. FLONASE [Concomitant]
     Active Substance: FLUTICASONE PROPIONATE
     Dosage: QD
     Route: 065
  32. HYDROCODONE BITARTRATE AND ACETAMINOPHEN [Concomitant]
     Active Substance: ACETAMINOPHEN\HYDROCODONE BITARTRATE
     Indication: PRODUCT USED FOR UNKNOWN INDICATION
     Dosage: PRN
     Route: 065
  33. COVID?19 VACCINE [Concomitant]
     Dosage: UNK
     Route: 065
     Dates: start: 20210127
  34. JAKAFI [Suspect]
     Active Substance: RUXOLITINIB
     Dosage: 15 MILLIGRAM, BID
     Route: 048
  35. JAKAFI [Suspect]
     Active Substance: RUXOLITINIB
     Dosage: 15 MILLIGRAM, BID
     Route: 048
     Dates: start: 201703
  36. JAKAFI [Suspect]
     Active Substance: RUXOLITINIB
     Dosage: 15 MG, BID
     Route: 048
     Dates: start: 20200310
  37. BENICAR [Concomitant]
     Active Substance: OLMESARTAN MEDOXOMIL
     Indication: PRODUCT USED FOR UNKNOWN INDICATION
     Dosage: UNK
     Route: 065
  38. METOPROLOL SUCCINATE. [Concomitant]
     Active Substance: METOPROLOL SUCCINATE
     Indication: PRODUCT USED FOR UNKNOWN INDICATION
     Dosage: UNK
     Route: 065
  39. ERYTHROMYCIN. [Concomitant]
     Active Substance: ERYTHROMYCIN
     Indication: PRODUCT USED FOR UNKNOWN INDICATION
     Dosage: UNK
     Route: 065

REACTIONS (103)
  - Malaise [Unknown]
  - Haemorrhage [Unknown]
  - Night sweats [Recovered/Resolved]
  - International normalised ratio abnormal [Unknown]
  - Endocrine disorder [Unknown]
  - Mastication disorder [Unknown]
  - Joint swelling [Recovering/Resolving]
  - Arthritis [Not Recovered/Not Resolved]
  - Gastrointestinal disorder [Unknown]
  - Arthralgia [Recovering/Resolving]
  - Blood cholesterol increased [Unknown]
  - Peripheral swelling [Unknown]
  - Balance disorder [Not Recovered/Not Resolved]
  - Urinary tract infection [Unknown]
  - Cough [Not Recovered/Not Resolved]
  - Secretion discharge [Unknown]
  - Therapeutic response unexpected [Unknown]
  - Speech disorder [Unknown]
  - Limb injury [Unknown]
  - Blood disorder [Unknown]
  - Renal function test abnormal [Not Recovered/Not Resolved]
  - Incorrect dose administered [Unknown]
  - Fatigue [Not Recovered/Not Resolved]
  - Transient ischaemic attack [Unknown]
  - Hip fracture [Recovering/Resolving]
  - Platelet count decreased [Not Recovered/Not Resolved]
  - Dysarthria [Unknown]
  - Irritable bowel syndrome [Unknown]
  - Haematocrit increased [Unknown]
  - Head injury [Unknown]
  - Back injury [Unknown]
  - Blood bilirubin increased [Unknown]
  - Feeling abnormal [Unknown]
  - Antibody test negative [Unknown]
  - Weight increased [Unknown]
  - Purpura [Unknown]
  - Pneumonia viral [Recovering/Resolving]
  - Paraesthesia [Unknown]
  - Blood calcium increased [Unknown]
  - Skin discolouration [Unknown]
  - Depression [Unknown]
  - Hypophagia [Recovering/Resolving]
  - Mesenteric venous occlusion [Unknown]
  - Abdominal discomfort [Unknown]
  - Cholelithiasis [Unknown]
  - Gait disturbance [Recovering/Resolving]
  - Vitamin D decreased [Unknown]
  - Fluid retention [Unknown]
  - White blood cells urine positive [Unknown]
  - Anxiety [Unknown]
  - Platelet count increased [Unknown]
  - Energy increased [Unknown]
  - Vascular calcification [Unknown]
  - Pain [Unknown]
  - Cystitis [Recovering/Resolving]
  - Contusion [Unknown]
  - Femur fracture [Not Recovered/Not Resolved]
  - Thrombosis [Unknown]
  - Arterial stenosis [Unknown]
  - Haemoglobin decreased [Recovering/Resolving]
  - Thrombocytopenia [Not Recovered/Not Resolved]
  - Burning sensation [Unknown]
  - Cheilitis [Unknown]
  - Oral discomfort [Unknown]
  - Pyrexia [Not Recovered/Not Resolved]
  - Pollakiuria [Unknown]
  - Vitamin B12 decreased [Unknown]
  - Exposure to SARS-CoV-2 [Not Recovered/Not Resolved]
  - Red blood cell count decreased [Unknown]
  - Anaemia [Not Recovered/Not Resolved]
  - Nausea [Unknown]
  - Abdominal pain [Unknown]
  - Diarrhoea [Unknown]
  - Alanine aminotransferase increased [Unknown]
  - International normalised ratio decreased [Unknown]
  - Stomatitis [Unknown]
  - Impaired healing [Unknown]
  - Dyspepsia [Unknown]
  - Viral infection [Unknown]
  - Blood lactate dehydrogenase increased [Not Recovered/Not Resolved]
  - Pain in extremity [Recovering/Resolving]
  - Lung disorder [Recovering/Resolving]
  - Tooth fracture [Unknown]
  - Tremor [Unknown]
  - Bone marrow disorder [Not Recovered/Not Resolved]
  - Cold sweat [Unknown]
  - Eating disorder [Unknown]
  - Blood folate decreased [Unknown]
  - Blood pressure increased [Unknown]
  - Multiple fractures [Unknown]
  - Intestinal ischaemia [Unknown]
  - Stress fracture [Recovering/Resolving]
  - Parathyroid disorder [Unknown]
  - Weight decreased [Recovering/Resolving]
  - Hepatic enzyme increased [Recovering/Resolving]
  - Tooth disorder [Unknown]
  - Blood calcium decreased [Unknown]
  - Blood pressure fluctuation [Unknown]
  - Fall [Recovering/Resolving]
  - Bone disorder [Unknown]
  - Swelling [Unknown]
  - Haematocrit decreased [Unknown]
  - Increased tendency to bruise [Unknown]

NARRATIVE: CASE EVENT DATE: 2017
